FAERS Safety Report 25969416 (Version 1)
Quarter: 2025Q4

REPORT INFORMATION
  Report Type: Spontaneous
  Country: US (occurrence: None)
  Receive Date: 20251027
  Receipt Date: 20251027
  Transmission Date: 20260118
  Serious: Yes (Hospitalization)
  Sender: FDA-CTU
  Company Number: None

PATIENT
  Age: 70 Year
  Sex: Female
  Weight: 45 kg

DRUGS (9)
  1. CIPRO [Suspect]
     Active Substance: CIPROFLOXACIN HYDROCHLORIDE
     Indication: Infection prophylaxis
     Dates: start: 20240620, end: 20240623
  2. Losartan 50 mg/daily [Concomitant]
  3. VITAMINS [Concomitant]
     Active Substance: VITAMINS
  4. CoenzymeQ10 [Concomitant]
  5. VITAMIN C [Concomitant]
     Active Substance: ASCORBIC ACID
  6. CALCIUM [Concomitant]
     Active Substance: CALCIUM
  7. Onega 3 [Concomitant]
  8. Vita D [Concomitant]
  9. ZINC [Concomitant]
     Active Substance: ZINC

REACTIONS (9)
  - Dysstasia [None]
  - Gait disturbance [None]
  - Dyspnoea [None]
  - Asthenia [None]
  - Headache [None]
  - Muscular weakness [None]
  - Neck pain [None]
  - Pain in jaw [None]
  - Mitochondrial toxicity [None]

NARRATIVE: CASE EVENT DATE: 20240626
